FAERS Safety Report 9786578 (Version 2)
Quarter: 2014Q3

REPORT INFORMATION
  Report Type: Spontaneous
  Country: US (occurrence: US)
  Receive Date: 20131227
  Receipt Date: 20140804
  Transmission Date: 20150326
  Serious: No
  Sender: FDA-Public Use
  Company Number: US-009507513-1312USA011037

PATIENT
  Age: 26 Year
  Sex: Female
  Weight: 106.58 kg

DRUGS (2)
  1. VITAMINS (UNSPECIFIED) [Concomitant]
     Active Substance: VITAMINS
     Dosage: 1 DF, QD
     Route: 048
  2. IMPLANON [Suspect]
     Active Substance: ETONOGESTREL
     Dosage: UNK
     Route: 059
     Dates: start: 2011

REACTIONS (5)
  - Drug dose omission [Unknown]
  - Unintended pregnancy [Recovered/Resolved]
  - Pre-eclampsia [Unknown]
  - Premature delivery [Unknown]
  - Medical device complication [Unknown]

NARRATIVE: CASE EVENT DATE: 2013
